FAERS Safety Report 6335317-7 (Version None)
Quarter: 2009Q3

REPORT INFORMATION
  Report Type: 
  Country: None (occurrence: None)
  Receive Date: 20090827
  Receipt Date: 20000628
  Transmission Date: 20100115
  Serious: Yes (Death)
  Sender: FDA-Public Use
  Company Number: 2009008848

PATIENT
  Age: 51 Year
  Sex: Female

DRUGS (6)
  1. MODAFINIL [Suspect]
     Indication: ALTERED STATE OF CONSCIOUSNESS
     Dosage: (1 TABLET IN AM AND 1 TABLET AT NOON), ORAL; (2 TABLETS IN AM AND 2 TABLETS AT NOON), ORAL
     Route: 048
     Dates: start: 20000519, end: 20000531
  2. MODAFINIL [Suspect]
     Indication: ALTERED STATE OF CONSCIOUSNESS
     Dosage: (1 TABLET IN AM AND 1 TABLET AT NOON), ORAL; (2 TABLETS IN AM AND 2 TABLETS AT NOON), ORAL
     Route: 048
     Dates: start: 20000601, end: 20000606
  3. MODAFINIL [Suspect]
     Indication: ALTERED STATE OF CONSCIOUSNESS
     Dosage: (1 TABLET IN AM AND 1 TABLET AT NOON), ORAL; (2 TABLETS IN AM AND 2 TABLETS AT NOON), ORAL
     Route: 048
     Dates: start: 20000607
  4. LEVOTHYROXINE SODIUM [Concomitant]
  5. DEPAKINE (VALPROIC ACID) [Concomitant]
  6. LIORESAL [Concomitant]

REACTIONS (1)
  - DEATH [None]
